FAERS Safety Report 12677320 (Version 1)
Quarter: 2016Q3

REPORT INFORMATION
  Report Type: Spontaneous
  Country: FR (occurrence: FR)
  Receive Date: 20160823
  Receipt Date: 20160823
  Transmission Date: 20161109
  Serious: Yes (Hospitalization)
  Sender: FDA-Public Use
  Company Number: FR-PFIZER INC-2016384228

PATIENT
  Age: 76 Year
  Sex: Female

DRUGS (6)
  1. NEURONTIN [Suspect]
     Active Substance: GABAPENTIN
     Indication: PAIN
     Dosage: 450 MG, DAILY (200 MG MORNING, 250 MG EVENING)
     Route: 048
     Dates: end: 201606
  2. HALAVEN [Suspect]
     Active Substance: ERIBULIN MESYLATE
     Dosage: 1.96 MG (1.23 MG/M2) D1 CYCLE 2
     Route: 042
     Dates: start: 20160524, end: 20160524
  3. HALAVEN [Suspect]
     Active Substance: ERIBULIN MESYLATE
     Indication: ADENOCARCINOMA
     Dosage: 1.96 MG (1.23 MG/M2) D1 CYCLE 1
     Route: 042
     Dates: start: 20160510, end: 20160510
  4. HALAVEN [Suspect]
     Active Substance: ERIBULIN MESYLATE
     Dosage: 1.96 MG (1.23 MG/M2) D8 CYCLE 1
     Route: 042
     Dates: start: 20160517, end: 20160517
  5. OXYNORMORO [Suspect]
     Active Substance: OXYCODONE
     Indication: PAIN
     Dosage: 10 MG, DAILY
     Route: 048
     Dates: end: 201606
  6. OXYCONTIN [Suspect]
     Active Substance: OXYCODONE HYDROCHLORIDE
     Indication: PAIN
     Dosage: 25 MG, DAILY (15 MG MORNING, 10 MG EVENING)
     Route: 048
     Dates: end: 201606

REACTIONS (5)
  - Aphasia [Unknown]
  - Ataxia [Recovered/Resolved]
  - Overdose [Recovering/Resolving]
  - Balance disorder [Recovered/Resolved]
  - Memory impairment [Unknown]

NARRATIVE: CASE EVENT DATE: 201605
